FAERS Safety Report 8494648-5 (Version None)
Quarter: 2012Q3

REPORT INFORMATION
  Report Type: 
  Country: None (occurrence: None)
  Receive Date: 20120709
  Receipt Date: 20120628
  Transmission Date: 20120928
  Serious: Yes (Other)
  Sender: FDA-Public Use
  Company Number: CA-JNJFOC-20120614708

PATIENT
  Sex: Male
  Weight: 76 kg

DRUGS (8)
  1. REMICADE [Suspect]
     Indication: CROHN'S DISEASE
     Route: 042
     Dates: start: 20120319
  2. PANTOPRAZOLE SODIUM [Concomitant]
     Route: 065
  3. IMURAN [Concomitant]
     Route: 065
  4. TYLENOL W/ CODEINE NO. 3 [Concomitant]
     Route: 065
  5. ZOFRAN [Concomitant]
     Route: 065
  6. FERROUS SULFATE TAB [Concomitant]
     Route: 065
  7. TRAZODONE HYDROCHLORIDE [Concomitant]
     Dosage: 50 TO 100 MG
     Route: 065
  8. TYLENOL 1 [Concomitant]
     Route: 065

REACTIONS (3)
  - VOMITING [None]
  - ABDOMINAL PAIN [None]
  - DIARRHOEA [None]
